FAERS Safety Report 25496049 (Version 1)
Quarter: 2025Q2

REPORT INFORMATION
  Report Type: Spontaneous
  Country: ZA (occurrence: ZA)
  Receive Date: 20250630
  Receipt Date: 20250630
  Transmission Date: 20250717
  Serious: Yes (Death, Hospitalization)
  Sender: MYLAN
  Company Number: ZA-MYLANLABS-2025M1054657

PATIENT
  Age: 25 Year
  Sex: Male

DRUGS (9)
  1. VANCOMYCIN [Suspect]
     Active Substance: VANCOMYCIN
     Indication: Corynebacterium infection
  2. VANCOMYCIN [Suspect]
     Active Substance: VANCOMYCIN
     Indication: Endocarditis bacterial
  3. GENTAMICIN [Suspect]
     Active Substance: GENTAMICIN
     Indication: Corynebacterium infection
     Dosage: 240 MILLIGRAM, QD
  4. GENTAMICIN [Suspect]
     Active Substance: GENTAMICIN
     Indication: Endocarditis bacterial
  5. GENTAMICIN [Suspect]
     Active Substance: GENTAMICIN
     Indication: Corynebacterium infection
  6. GENTAMICIN [Suspect]
     Active Substance: GENTAMICIN
     Indication: Endocarditis bacterial
  7. PENICILLIN G [Suspect]
     Active Substance: PENICILLIN G
     Indication: Corynebacterium infection
  8. PENICILLIN G [Suspect]
     Active Substance: PENICILLIN G
     Indication: Endocarditis bacterial
     Dosage: UNK, Q6H; 6 MILLION UNITS
  9. DOXYCYCLINE [Concomitant]
     Active Substance: DOXYCYCLINE
     Indication: Pyrexia

REACTIONS (1)
  - Drug ineffective [Fatal]
